FAERS Safety Report 16947772 (Version 2)
Quarter: 2020Q4

REPORT INFORMATION
  Report Type: Spontaneous
  Country: US (occurrence: US)
  Receive Date: 20191022
  Receipt Date: 20201022
  Transmission Date: 20210113
  Serious: No
  Sender: FDA-Public Use
  Company Number: US-BRACCO-2019US04054

PATIENT
  Sex: Female

DRUGS (1)
  1. LIQUID E-Z-PAQUE [Suspect]
     Active Substance: BARIUM SULFATE
     Indication: OESOPHAGRAM
     Dosage: 50 ML, SINGLE
     Route: 048
     Dates: start: 20190807, end: 20190807

REACTIONS (3)
  - Product packaging quantity issue [Unknown]
  - No adverse event [Unknown]
  - Therapeutic product effect decreased [Unknown]

NARRATIVE: CASE EVENT DATE: 20190807
